FAERS Safety Report 6425721-0 (Version None)
Quarter: 2009Q4

REPORT INFORMATION
  Report Type: 
  Country: None (occurrence: None)
  Receive Date: 20091103
  Receipt Date: 20091029
  Transmission Date: 20100525
  Serious: Yes (Death)
  Sender: FDA-Public Use
  Company Number: PHHY2009GB42163

PATIENT
  Sex: Male
  Weight: 59 kg

DRUGS (12)
  1. CLOZARIL [Suspect]
     Indication: SCHIZOPHRENIA
     Dosage: 375 MG, DAILY
     Route: 048
     Dates: start: 19980226
  2. MIRTAZAPINE [Concomitant]
     Indication: DEPRESSION
     Dosage: 150 MG, QD
     Route: 048
     Dates: start: 20070703
  3. AMLODIPINE [Concomitant]
     Indication: HYPERTENSION
     Dosage: 5 MG, QD
     Route: 048
     Dates: start: 20070711
  4. LEVOTHYROXINE SODIUM [Concomitant]
     Indication: HYPOTHYROIDISM
     Dosage: 25 UG, QD
     Route: 048
     Dates: start: 20070717
  5. ALBUTEROL [Concomitant]
     Indication: CHRONIC OBSTRUCTIVE PULMONARY DISEASE
     Dosage: 1 DF, TID
     Route: 048
     Dates: start: 20070705
  6. LACTULOSE [Concomitant]
     Dosage: 3.1-3.7/5ML
     Route: 048
  7. AMOXICILLIN [Concomitant]
     Indication: LOWER RESPIRATORY TRACT INFECTION
     Dosage: 250 UNK, TID
     Route: 048
     Dates: start: 20090924
  8. AMOXICILLIN AND CLAVULANATE POTASSIUM [Concomitant]
     Dosage: 250/125, TID
     Route: 048
     Dates: start: 20090924
  9. PREDNISOLONE [Concomitant]
     Dosage: 30 MG, QD
     Route: 048
     Dates: start: 20090924
  10. FERROUS SULFATE TAB [Concomitant]
     Dosage: 20 MG, TID
     Route: 048
  11. NITROFURANTOIN [Concomitant]
     Dosage: 50 MG, UNK
     Route: 048
  12. BISACODYL [Concomitant]

REACTIONS (1)
  - DEATH [None]
